FAERS Safety Report 8480638-5 (Version None)
Quarter: 2012Q3

REPORT INFORMATION
  Report Type: 
  Country: None (occurrence: None)
  Receive Date: 20120702
  Receipt Date: 20120625
  Transmission Date: 20120928
  Serious: Yes (Hospitalization)
  Sender: FDA-Public Use
  Company Number: US-AMGEN-USASP2012039336

PATIENT
  Age: 68 Year
  Sex: Female

DRUGS (3)
  1. ENBREL [Suspect]
     Indication: PSORIATIC ARTHROPATHY
  2. REMICADE [Concomitant]
     Dosage: UNK
  3. ENBREL [Suspect]
     Indication: RHEUMATOID ARTHRITIS
     Dosage: UNK
     Dates: start: 20030924

REACTIONS (9)
  - CYSTITIS INTERSTITIAL [None]
  - URINARY TRACT INFECTION [None]
  - NEPHROLITHIASIS [None]
  - CATARACT [None]
  - LOSS OF CONSCIOUSNESS [None]
  - DEVICE RELATED INFECTION [None]
  - STRESS URINARY INCONTINENCE [None]
  - PYREXIA [None]
  - MACULAR DEGENERATION [None]
